FAERS Safety Report 5107182-7 (Version None)
Quarter: 2006Q3

REPORT INFORMATION
  Report Type: 
  Country: None (occurrence: None)
  Receive Date: 20060913
  Receipt Date: 20060823
  Transmission Date: 20061208
  Serious: Yes (Hospitalization)
  Sender: FDA-Public Use
  Company Number: US200608005103

PATIENT
  Age: 57 Year
  Sex: Female

DRUGS (9)
  1. FORTEO [Suspect]
     Indication: OSTEOPOROSIS
     Dosage: 20 UG,
     Dates: start: 20060701, end: 20060701
  2. FORTEO [Concomitant]
  3. DEPAKOTE [Concomitant]
  4. ZOLOFT [Concomitant]
  5. SEROQUEL [Concomitant]
  6. NEURONTIN [Concomitant]
  7. LORTAB [Concomitant]
  8. DOCUSATE (DOCUSATE) [Concomitant]
  9. LIPITOR [Concomitant]

REACTIONS (4)
  - CHEST PAIN [None]
  - DYSPNOEA [None]
  - FOOT FRACTURE [None]
  - PLEURISY [None]
